FAERS Safety Report 23073911 (Version 1)
Quarter: 2023Q4

REPORT INFORMATION
  Report Type: Spontaneous
  Country: US (occurrence: US)
  Receive Date: 20231017
  Receipt Date: 20231017
  Transmission Date: 20240110
  Serious: Yes (Hospitalization, Other)
  Sender: FDA-Public Use
  Company Number: US-Accord-384270

PATIENT
  Age: 45 Year
  Sex: Male

DRUGS (4)
  1. APIXABAN [Suspect]
     Active Substance: APIXABAN
     Indication: Hypercoagulation
     Route: 048
  2. RIVAROXABAN [Suspect]
     Active Substance: RIVAROXABAN
     Indication: Hypercoagulation
  3. IBUPROFEN [Concomitant]
     Active Substance: IBUPROFEN
     Indication: Limb discomfort
  4. GABAPENTIN [Concomitant]
     Active Substance: GABAPENTIN
     Indication: Limb discomfort
     Dosage: 2-3 TIMES DAILY

REACTIONS (1)
  - Cutaneous vasculitis [Recovered/Resolved]
